FAERS Safety Report 8879984 (Version 1)
Quarter: 2012Q4

REPORT INFORMATION
  Report Type: 
  Country: CA (occurrence: CA)
  Receive Date: 20121101
  Receipt Date: 20121101
  Transmission Date: 20130627
  Serious: Yes (Hospitalization, Disabling)
  Sender: FDA-Public Use
  Company Number: PHHY2012CA098336

PATIENT
  Age: 55 Year
  Sex: Male

DRUGS (4)
  1. TASIGNA [Suspect]
     Dosage: 300 mg, BID
     Route: 048
  2. LIPITOR [Concomitant]
  3. PLAVIX [Concomitant]
  4. ZYLOPRIM [Concomitant]

REACTIONS (2)
  - Asthenia [Recovered/Resolved]
  - Muscular weakness [Recovered/Resolved]
